FAERS Safety Report 8257236-1 (Version None)
Quarter: 2012Q2

REPORT INFORMATION
  Report Type: 
  Country: None (occurrence: None)
  Receive Date: 20120403
  Receipt Date: 20120326
  Transmission Date: 20120825
  Serious: Yes (Other)
  Sender: FDA-Public Use
  Company Number: VE-ELI_LILLY_AND_COMPANY-VE201203007966

PATIENT
  Sex: Male

DRUGS (2)
  1. HUMALOG MIX 75/25 [Suspect]
     Indication: TYPE 2 DIABETES MELLITUS
     Dosage: 18 U, EACH MORNING
     Dates: start: 20120110
  2. HUMALOG MIX 75/25 [Suspect]
     Dosage: 16 U, EACH EVENING
     Dates: start: 20120110

REACTIONS (1)
  - PANCREATIC CARCINOMA [None]
